FAERS Safety Report 9910834 (Version 1)
Quarter: 2014Q1

REPORT INFORMATION
  Report Type: Spontaneous
  Country: FR (occurrence: FR)
  Receive Date: 20140219
  Receipt Date: 20140219
  Transmission Date: 20141002
  Serious: Yes (Hospitalization)
  Sender: FDA-Public Use
  Company Number: FR-SA-2014SA018958

PATIENT
  Sex: 0

DRUGS (8)
  1. RIFAMPICIN [Suspect]
     Indication: PRODUCT USED FOR UNKNOWN INDICATION
     Route: 065
  2. VANCOMYCIN [Suspect]
     Indication: PRODUCT USED FOR UNKNOWN INDICATION
     Route: 065
  3. FLUINDIONE [Concomitant]
  4. ACEBUTOLOL [Concomitant]
  5. AMIODARONE [Concomitant]
  6. CIPROFLOXACIN [Concomitant]
  7. LINCOMYCIN [Concomitant]
  8. ASPIRIN [Concomitant]

REACTIONS (1)
  - Linear IgA disease [Recovering/Resolving]
